FAERS Safety Report 5368783-4 (Version None)
Quarter: 2007Q2

REPORT INFORMATION
  Report Type: 
  Country: None (occurrence: None)
  Receive Date: 20070621
  Receipt Date: 20070621
  Transmission Date: 20071010
  Serious: No
  Sender: FDA-Public Use
  Company Number: None

PATIENT
  Sex: Male
  Weight: 100 kg

DRUGS (1)
  1. TAXOTERE [Suspect]
     Dosage: 164 MG

REACTIONS (1)
  - WHITE BLOOD CELL COUNT DECREASED [None]
